FAERS Safety Report 19292832 (Version 2)
Quarter: 2021Q2

REPORT INFORMATION
  Report Type: Spontaneous
  Country: US (occurrence: US)
  Receive Date: 20210524
  Receipt Date: 20210527
  Transmission Date: 20210717
  Serious: No
  Sender: FDA-Public Use
  Company Number: US-ORGANON-O2105USA001691

PATIENT
  Sex: Female

DRUGS (1)
  1. NEXPLANON [Suspect]
     Active Substance: ETONOGESTREL
     Indication: CONTRACEPTION
     Dosage: 1 DOSAGE FORM (1 IMPLANT), ONCE
     Route: 059
     Dates: start: 20190312, end: 20190424

REACTIONS (3)
  - Maternal exposure timing unspecified [Unknown]
  - Hormone level abnormal [Unknown]
  - Affective disorder [Unknown]

NARRATIVE: CASE EVENT DATE: 2019
